FAERS Safety Report 4377730-3 (Version None)
Quarter: 2004Q2

REPORT INFORMATION
  Report Type: 
  Country: None (occurrence: None)
  Receive Date: 20040615
  Receipt Date: 20040325
  Transmission Date: 20050107
  Serious: Yes (Hospitalization)
  Sender: FDA-Public Use
  Company Number: PHEH2004US03428

PATIENT
  Age: 27 Year
  Sex: Female
  Weight: 50 kg

DRUGS (6)
  1. ZELNORM [Suspect]
     Indication: IRRITABLE BOWEL SYNDROME
     Dosage: 6 MG, BID
     Route: 048
     Dates: start: 20040105
  2. NARDIL [Suspect]
     Indication: BIPOLAR DISORDER
     Dosage: 15 MG, UNK
     Dates: start: 20020225
  3. IMITREX [Suspect]
     Indication: HEADACHE
     Dosage: UNK, UNK
     Route: 030
  4. LAMICTAL [Concomitant]
  5. FOLIC ACID [Concomitant]
  6. PRENATAL VITAMINS [Concomitant]

REACTIONS (2)
  - CONFUSIONAL STATE [None]
  - MIGRAINE [None]
